FAERS Safety Report 8746339 (Version 3)
Quarter: 2012Q4

REPORT INFORMATION
  Report Type: 
  Country: DK (occurrence: DK)
  Receive Date: 20120827
  Receipt Date: 20121116
  Transmission Date: 20130627
  Serious: Yes (Other)
  Sender: FDA-Public Use
  Company Number: DK-JNJFOC-20120809111

PATIENT
  Age: 71 Year
  Sex: Female
  Weight: 70 kg

DRUGS (7)
  1. IMODIUM PLUS [Suspect]
     Route: 065
  2. IMODIUM PLUS [Suspect]
     Indication: DIARRHOEA
     Route: 065
     Dates: start: 20120705, end: 2012
  3. KLYX [Suspect]
     Indication: CONSTIPATION
     Route: 054
     Dates: start: 2012, end: 2012
  4. BIFIFORM [Suspect]
     Indication: DIARRHOEA
     Route: 065
     Dates: start: 20120625, end: 20120630
  5. MAGNESIUM  OXIDE [Suspect]
     Indication: CONSTIPATION
     Route: 065
     Dates: start: 2012, end: 2012
  6. AN UNKNOWN MEDICATION [Suspect]
     Indication: CONSTIPATION
     Route: 065
  7. AN UNKNOWN MEDICATION [Suspect]
     Indication: CONSTIPATION
     Route: 065

REACTIONS (6)
  - Abscess intestinal [Unknown]
  - Haemorrhoids [Recovering/Resolving]
  - Flatulence [Unknown]
  - Gastrointestinal disorder [Unknown]
  - Malaise [Unknown]
  - Sleep disorder [Unknown]
